FAERS Safety Report 5407526-2 (Version None)
Quarter: 2007Q3

REPORT INFORMATION
  Report Type: 
  Country: None (occurrence: None)
  Receive Date: 20070713
  Receipt Date: 20070329
  Transmission Date: 20080115
  Serious: Yes (Hospitalization, Other)
  Sender: FDA-Public Use
  Company Number: US-JNJFOC-20060200112

PATIENT
  Age: 27 Year
  Sex: Female
  Weight: 66.2252 kg

DRUGS (5)
  1. ORTHO EVRA [Suspect]
     Indication: PELVIC PAIN
     Dosage: TRANSDERMAL
     Route: 062
     Dates: start: 20031201, end: 20051001
  2. SEROQUEL [Concomitant]
  3. LAMICTAL [Concomitant]
  4. TIZANIDINE HCL [Concomitant]
  5. AMITRIPTYLLINE (AMITRIPTYLINE) [Concomitant]

REACTIONS (3)
  - CHEST PAIN [None]
  - MIGRAINE [None]
  - THROMBOPHLEBITIS SUPERFICIAL [None]
